FAERS Safety Report 6539958-3 (Version None)
Quarter: 2010Q1

REPORT INFORMATION
  Report Type: 
  Country: None (occurrence: None)
  Receive Date: 20100115
  Receipt Date: 20100113
  Transmission Date: 20100710
  Serious: Yes (Hospitalization, Other)
  Sender: FDA-Public Use
  Company Number: US-ROXANE LABORATORIES, INC.-2010-RO-00020RO

PATIENT
  Age: 67 Year
  Sex: Female

DRUGS (6)
  1. FLECAINIDE [Suspect]
     Indication: ATRIAL TACHYCARDIA
     Dosage: 200 MG
     Route: 048
  2. ASPIRIN [Suspect]
     Dosage: 81 MG
     Route: 048
  3. METOPROLOL SUCCINATE [Suspect]
     Dosage: 50 MG
     Route: 048
  4. INSULIN ASPART [Suspect]
  5. INSULIN GLARGINE [Suspect]
  6. LISINOPRIL [Suspect]
     Dosage: 20 MG
     Route: 048

REACTIONS (4)
  - ASTHENIA [None]
  - DIZZINESS [None]
  - HYPONATRAEMIA [None]
  - MALAISE [None]
